FAERS Safety Report 12123637 (Version 1)
Quarter: 2016Q1

REPORT INFORMATION
  Report Type: Spontaneous
  Country: US (occurrence: None)
  Receive Date: 20160226
  Receipt Date: 20160226
  Transmission Date: 20160526
  Serious: No
  Sender: FDA-Public Use
  Company Number: None

PATIENT
  Age: 72 Year
  Sex: Male

DRUGS (1)
  1. WARFARIN 6 MG CITRON EXELON [Suspect]
     Active Substance: WARFARIN

REACTIONS (3)
  - Product substitution issue [None]
  - Anticoagulation drug level below therapeutic [None]
  - Product colour issue [None]

NARRATIVE: CASE EVENT DATE: 20160217
